FAERS Safety Report 24367297 (Version 3)
Quarter: 2024Q4

REPORT INFORMATION
  Report Type: Spontaneous
  Country: US (occurrence: US)
  Receive Date: 20240926
  Receipt Date: 20241115
  Transmission Date: 20250114
  Serious: Yes (Other)
  Sender: PFIZER
  Company Number: US-PFIZER INC-202400261922

PATIENT
  Age: 64 Year
  Sex: Female

DRUGS (1)
  1. ESTRING [Suspect]
     Active Substance: ESTRADIOL
     Dosage: UNK
     Dates: start: 2022

REACTIONS (7)
  - Heart rate decreased [Unknown]
  - Dyspnoea [Unknown]
  - Hypokinesia [Unknown]
  - Pain [Unknown]
  - Panic attack [Unknown]
  - Palpitations [Unknown]
  - Product complaint [Unknown]
